FAERS Safety Report 10269992 (Version 4)
Quarter: 2014Q4

REPORT INFORMATION
  Report Type: Spontaneous
  Country: US (occurrence: None)
  Receive Date: 20140626
  Receipt Date: 20141128
  Transmission Date: 20150528
  Serious: Yes (Hospitalization)
  Sender: FDA-Public Use
  Company Number: 2014PAC00010

PATIENT
  Age: 70 Year
  Sex: Female
  Weight: 68 kg

DRUGS (6)
  1. GARLIC. [Concomitant]
     Active Substance: GARLIC
  2. RAW CIDER VINEGAR [Concomitant]
  3. KRILL OIL [Concomitant]
     Active Substance: DIETARY SUPPLEMENT
  4. VITAMIN B-STRESS FORMULA [Concomitant]
  5. CLONAZEPAM. [Concomitant]
     Active Substance: CLONAZEPAM
  6. LOSARTAN POTASSIUM TABLETS [Suspect]
     Active Substance: LOSARTAN POTASSIUM
     Indication: HYPERTENSION
     Route: 048
     Dates: start: 2011

REACTIONS (18)
  - Myalgia [None]
  - Feeling abnormal [None]
  - Nasal discomfort [None]
  - Fatigue [None]
  - Anxiety [None]
  - Hypoaesthesia [None]
  - Influenza [None]
  - Drug dose omission [None]
  - Hypotension [None]
  - Muscle disorder [None]
  - Somnolence [None]
  - Asthenia [None]
  - Cough [None]
  - Depressed mood [None]
  - Arthropathy [None]
  - Headache [None]
  - Activities of daily living impaired [None]
  - Hypertension [None]

NARRATIVE: CASE EVENT DATE: 20130329
